FAERS Safety Report 17393547 (Version 2)
Quarter: 2020Q1

REPORT INFORMATION
  Report Type: Spontaneous
  Country: JP (occurrence: JP)
  Receive Date: 20200208
  Receipt Date: 20200213
  Transmission Date: 20200409
  Serious: Yes (Death, Other)
  Sender: FDA-Public Use
  Company Number: JP-AMGEN-JPNSP2020019576

PATIENT
  Age: 4 Year
  Sex: Female

DRUGS (3)
  1. INOTUZUMAB OZOGAMICIN [Concomitant]
     Active Substance: INOTUZUMAB OZOGAMICIN
     Dosage: UNK
  2. BLINCYTO [Suspect]
     Active Substance: BLINATUMOMAB
     Dosage: 15 MICROGRAM/SQ. METER, QD
     Route: 041
     Dates: start: 20190304, end: 20190324
  3. BLINCYTO [Suspect]
     Active Substance: BLINATUMOMAB
     Indication: PRECURSOR B-LYMPHOBLASTIC LYMPHOMA REFRACTORY
     Dosage: 5 MICROGRAM/SQ. METER, QD
     Route: 041
     Dates: start: 20190225, end: 20190303

REACTIONS (2)
  - Graft versus host disease [Unknown]
  - Acute lymphocytic leukaemia recurrent [Fatal]

NARRATIVE: CASE EVENT DATE: 2019
